FAERS Safety Report 6891960-8 (Version None)
Quarter: 2010Q3

REPORT INFORMATION
  Report Type: 
  Country: None (occurrence: None)
  Receive Date: 20100731
  Receipt Date: 20071130
  Transmission Date: 20110219
  Serious: No
  Sender: FDA-Public Use
  Company Number: US-PFIZER INC-2007100823

PATIENT

DRUGS (4)
  1. NEURONTIN [Suspect]
  2. OXYCONTIN [Concomitant]
  3. FLEXERIL [Concomitant]
  4. ZOLPIDEM [Concomitant]

REACTIONS (1)
  - PAIN [None]
